FAERS Safety Report 19153965 (Version 2)
Quarter: 2021Q2

REPORT INFORMATION
  Report Type: Report from Study
  Country: US (occurrence: US)
  Receive Date: 20210419
  Receipt Date: 20210423
  Transmission Date: 20210717
  Serious: No
  Sender: FDA-Public Use
  Company Number: US-SA-2021SA122827

PATIENT
  Age: 51 Year
  Sex: Female

DRUGS (2)
  1. DUPIXENT [Suspect]
     Active Substance: DUPILUMAB
     Dosage: 300 MG, QOW
     Route: 058
     Dates: start: 20210410
  2. DUPIXENT [Suspect]
     Active Substance: DUPILUMAB
     Indication: ASTHMA
     Dosage: 600 MG, 1X
     Route: 058
     Dates: start: 20210327, end: 20210327

REACTIONS (13)
  - Injection site urticaria [Unknown]
  - Urticaria papular [Unknown]
  - Cough [Unknown]
  - Throat irritation [Unknown]
  - Product use issue [Unknown]
  - Injection site inflammation [Unknown]
  - Urticaria [Unknown]
  - Pruritus [Unknown]
  - Pain of skin [Unknown]
  - Rash macular [Unknown]
  - Injection site pain [Unknown]
  - Injection site extravasation [Unknown]
  - Burning sensation [Unknown]

NARRATIVE: CASE EVENT DATE: 20210327
